FAERS Safety Report 21841843 (Version 1)
Quarter: 2023Q1

REPORT INFORMATION
  Report Type: Spontaneous
  Country: US (occurrence: None)
  Receive Date: 20230109
  Receipt Date: 20230109
  Transmission Date: 20230418
  Serious: No
  Sender: FDA-Public Use
  Company Number: None

PATIENT
  Sex: Male

DRUGS (1)
  1. NUCALA [Suspect]
     Active Substance: MEPOLIZUMAB
     Indication: Asthma
     Dosage: OTHER FREQUENCY : EVERY28DAYS;?
     Route: 058
     Dates: start: 20221119

REACTIONS (5)
  - Aphonia [None]
  - Lip swelling [None]
  - Swollen tongue [None]
  - Hypersensitivity [None]
  - Therapy cessation [None]
